FAERS Safety Report 6500459-X (Version None)
Quarter: 2009Q4

REPORT INFORMATION
  Report Type: 
  Country: None (occurrence: None)
  Receive Date: 20091216
  Receipt Date: 20091203
  Transmission Date: 20100525
  Serious: Yes (Other)
  Sender: FDA-Public Use
  Company Number: US-SANOFI-AVENTIS-2009SA006955

PATIENT
  Age: 84 Year
  Sex: Female

DRUGS (10)
  1. MULTAQ [Suspect]
     Indication: ATRIAL FIBRILLATION
     Route: 048
     Dates: start: 20091202
  2. LANOXIN [Concomitant]
     Dosage: HALF TABLET EVERY OTHER DAY
     Route: 065
  3. TENORMIN [Concomitant]
     Route: 048
  4. TENORMIN [Concomitant]
     Route: 048
  5. COUMADIN [Concomitant]
     Dosage: ALTERNATING DOSE EVERY 2 DAYS; DOSE LOWERED SINCE STARTING MULTAQ
     Route: 065
  6. VITAMIN B COMPLEX CAP [Concomitant]
  7. VITAMIN D [Concomitant]
  8. LOVAZA [Concomitant]
  9. PROZAC [Concomitant]
  10. ALPRAZOLAM [Concomitant]
     Dosage: TAKE ONE HALF OF A LOWER STRENGTH AS NEEDED
     Route: 065

REACTIONS (1)
  - ATRIAL FIBRILLATION [None]
